FAERS Safety Report 20059720 (Version 1)
Quarter: 2021Q4

REPORT INFORMATION
  Report Type: Spontaneous
  Country: US (occurrence: US)
  Receive Date: 20211111
  Receipt Date: 20211111
  Transmission Date: 20220303
  Serious: No
  Sender: FDA-Public Use
  Company Number: US-JNJFOC-20211100800

PATIENT
  Age: 46 Year
  Sex: Male

DRUGS (39)
  1. PEPCID [Suspect]
     Active Substance: FAMOTIDINE
     Indication: Flushing
     Route: 065
     Dates: start: 20211020
  2. PEPCID [Suspect]
     Active Substance: FAMOTIDINE
     Indication: Erythema
  3. PEPCID [Suspect]
     Active Substance: FAMOTIDINE
     Indication: Anxiety
  4. PEPCID [Suspect]
     Active Substance: FAMOTIDINE
     Indication: Urticaria
  5. TYLENOL [Concomitant]
     Active Substance: ACETAMINOPHEN
     Indication: Premedication
     Route: 065
     Dates: start: 20211019
  6. TYLENOL [Concomitant]
     Active Substance: ACETAMINOPHEN
     Indication: Urticaria
  7. BENADRYL [Concomitant]
     Active Substance: DIPHENHYDRAMINE HYDROCHLORIDE
     Indication: Premedication
     Route: 065
     Dates: start: 20211019
  8. BENADRYL [Concomitant]
     Active Substance: DIPHENHYDRAMINE HYDROCHLORIDE
     Indication: Tachycardia
     Route: 065
     Dates: start: 20211020
  9. BENADRYL [Concomitant]
     Active Substance: DIPHENHYDRAMINE HYDROCHLORIDE
     Indication: Nausea
  10. BENADRYL [Concomitant]
     Active Substance: DIPHENHYDRAMINE HYDROCHLORIDE
     Indication: Dyspnoea
  11. BENADRYL [Concomitant]
     Active Substance: DIPHENHYDRAMINE HYDROCHLORIDE
     Indication: Hypertension
  12. BENADRYL [Concomitant]
     Active Substance: DIPHENHYDRAMINE HYDROCHLORIDE
     Indication: Heart rate increased
  13. BENADRYL [Concomitant]
     Active Substance: DIPHENHYDRAMINE HYDROCHLORIDE
     Indication: Urticaria
  14. SOLU-CORTEF [Concomitant]
     Active Substance: HYDROCORTISONE SODIUM SUCCINATE
     Indication: Tachycardia
     Dosage: 10MG IV SOLUTCORTEF
     Route: 042
     Dates: start: 20211019
  15. SOLU-CORTEF [Concomitant]
     Active Substance: HYDROCORTISONE SODIUM SUCCINATE
     Indication: Nausea
  16. SOLU-CORTEF [Concomitant]
     Active Substance: HYDROCORTISONE SODIUM SUCCINATE
     Indication: Dyspnoea
  17. SOLU-CORTEF [Concomitant]
     Active Substance: HYDROCORTISONE SODIUM SUCCINATE
     Indication: Hypertension
  18. SOLU-CORTEF [Concomitant]
     Active Substance: HYDROCORTISONE SODIUM SUCCINATE
     Indication: Heart rate
  19. PEPCID [Concomitant]
     Active Substance: FAMOTIDINE
     Indication: Tachycardia
     Dosage: 20 MG IV PECID
     Route: 042
     Dates: start: 20211019
  20. PEPCID [Concomitant]
     Active Substance: FAMOTIDINE
     Indication: Nausea
  21. PEPCID [Concomitant]
     Active Substance: FAMOTIDINE
     Indication: Dyspnoea
  22. PEPCID [Concomitant]
     Active Substance: FAMOTIDINE
     Indication: Hypertension
  23. PEPCID [Concomitant]
     Active Substance: FAMOTIDINE
     Indication: Heart rate increased
  24. ALBUTEROL [Concomitant]
     Active Substance: ALBUTEROL
     Indication: Tachycardia
     Route: 065
     Dates: start: 20211019
  25. ALBUTEROL [Concomitant]
     Active Substance: ALBUTEROL
     Indication: Nausea
  26. ALBUTEROL [Concomitant]
     Active Substance: ALBUTEROL
     Indication: Dyspnoea
  27. ALBUTEROL [Concomitant]
     Active Substance: ALBUTEROL
     Indication: Hypertension
  28. ALBUTEROL [Concomitant]
     Active Substance: ALBUTEROL
     Indication: Heart rate increased
  29. EPINEPHRINE [Concomitant]
     Active Substance: EPINEPHRINE
     Indication: Tachycardia
     Route: 065
     Dates: start: 20211019
  30. EPINEPHRINE [Concomitant]
     Active Substance: EPINEPHRINE
     Indication: Nausea
  31. EPINEPHRINE [Concomitant]
     Active Substance: EPINEPHRINE
     Indication: Dyspnoea
  32. EPINEPHRINE [Concomitant]
     Active Substance: EPINEPHRINE
     Indication: Hypertension
  33. EPINEPHRINE [Concomitant]
     Active Substance: EPINEPHRINE
     Indication: Heart rate increased
  34. ATIVAN [Concomitant]
     Active Substance: LORAZEPAM
     Indication: Chest discomfort
     Route: 065
     Dates: start: 20211020
  35. ATIVAN [Concomitant]
     Active Substance: LORAZEPAM
     Route: 065
  36. SOLU-CORTEF [Concomitant]
     Active Substance: HYDROCORTISONE SODIUM SUCCINATE
     Indication: Flushing
     Route: 065
     Dates: start: 20211020
  37. SOLU-CORTEF [Concomitant]
     Active Substance: HYDROCORTISONE SODIUM SUCCINATE
     Indication: Erythema
  38. SOLU-CORTEF [Concomitant]
     Active Substance: HYDROCORTISONE SODIUM SUCCINATE
     Indication: Anxiety
  39. AMIVANTAMAB [Concomitant]
     Active Substance: AMIVANTAMAB
     Indication: Lung neoplasm malignant
     Dosage: ESTIMATED 175 MG OF RYBREVANT
     Route: 065
     Dates: start: 20211019

REACTIONS (3)
  - Product use in unapproved indication [Unknown]
  - Therapeutic response unexpected [Unknown]
  - Off label use [Unknown]
